APPROVED DRUG PRODUCT: ACHES-N-PAIN
Active Ingredient: IBUPROFEN
Strength: 200MG
Dosage Form/Route: TABLET;ORAL
Application: A071065 | Product #001
Applicant: LEDERLE LABORATORIES DIV AMERICAN CYANAMID CO
Approved: May 28, 1987 | RLD: No | RS: No | Type: DISCN